FAERS Safety Report 8079727-9 (Version None)
Quarter: 2012Q1

REPORT INFORMATION
  Report Type: 
  Country: None (occurrence: None)
  Receive Date: 20120128
  Receipt Date: 20110825
  Transmission Date: 20120608
  Serious: No
  Sender: FDA-Public Use
  Company Number: US-ABBOTT-11P-163-0840433-00

PATIENT
  Sex: Male
  Weight: 79.45 kg

DRUGS (8)
  1. METOPROLOL TARTRATE [Concomitant]
     Indication: DRUG THERAPY
  2. FOLIC ACID [Concomitant]
     Indication: VITAMIN SUPPLEMENTATION
  3. FLOMAX [Concomitant]
     Indication: PROSTATIC DISORDER
  4. PLAVIX [Concomitant]
     Indication: DRUG THERAPY
  5. VYTORIN [Concomitant]
     Indication: BLOOD CHOLESTEROL INCREASED
  6. HUMIRA [Suspect]
     Indication: PSORIATIC ARTHROPATHY
     Dates: start: 20090901
  7. CLOBETASOL PROPIONATE [Concomitant]
     Indication: PSORIASIS
  8. IBUPROFEN (ADVIL) [Concomitant]
     Indication: PAIN

REACTIONS (2)
  - DRUG INEFFECTIVE [None]
  - PAIN [None]
